FAERS Safety Report 4321012-2 (Version None)
Quarter: 2004Q1

REPORT INFORMATION
  Report Type: 
  Country: None (occurrence: None)
  Receive Date: 20040318
  Receipt Date: 20040308
  Transmission Date: 20041129
  Serious: Yes (Hospitalization)
  Sender: FDA-Public Use
  Company Number: IE-SHR-04-021684

PATIENT
  Age: 30 Year
  Sex: Female

DRUGS (1)
  1. MIRENA [Suspect]
     Dosage: 20 UG, CONT, INTRA-UTERNE
     Route: 015
     Dates: start: 20020605

REACTIONS (5)
  - CIRCULATORY COLLAPSE [None]
  - HAEMORRHAGE [None]
  - IUCD COMPLICATION [None]
  - SYNCOPE [None]
  - VAGINAL LACERATION [None]
